FAERS Safety Report 19987496 (Version 3)
Quarter: 2021Q4

REPORT INFORMATION
  Report Type: Report from Study
  Country: CA (occurrence: CA)
  Receive Date: 20211022
  Receipt Date: 20211214
  Transmission Date: 20220303
  Serious: Yes (Other)
  Sender: FDA-Public Use
  Company Number: CA-HLS-202108647

PATIENT
  Age: 44 Year
  Sex: Male
  Weight: 105 kg

DRUGS (1)
  1. CLOZARIL [Suspect]
     Active Substance: CLOZAPINE
     Indication: Product used for unknown indication
     Route: 048
     Dates: start: 20210508

REACTIONS (3)
  - Dyspnoea [Unknown]
  - Electrocardiogram abnormal [Unknown]
  - Myocarditis [Unknown]
